FAERS Safety Report 9230080 (Version 1)
Quarter: 2013Q2

REPORT INFORMATION
  Report Type: Spontaneous
  Country: US (occurrence: None)
  Receive Date: 20130411
  Receipt Date: 20130411
  Transmission Date: 20140414
  Serious: Yes (Other)
  Sender: FDA-Public Use
  Company Number: 1304-459

PATIENT
  Age: 67 Year
  Sex: Female
  Weight: 63.96 kg

DRUGS (6)
  1. EYLEA (AFLIBERCEPT) (INJECTION) (AFLIBERCEPT) [Suspect]
     Indication: RETINAL DETACHMENT
     Dates: start: 201205
  2. ATORVASTATIN (ATORVASTATIN) [Concomitant]
  3. LATANOPROST (LATANOPROST) (NONE) [Concomitant]
  4. CALCIUM (CALCIUM) [Concomitant]
  5. EYE CAPS (MINERALS NOS W/VITAMINS NOS) [Concomitant]
  6. LISINOPRIL (LISINOPRIL) [Concomitant]

REACTIONS (9)
  - Corneal erosion [None]
  - Eye swelling [None]
  - Vitreous floaters [None]
  - Corneal exfoliation [None]
  - Eye haemorrhage [None]
  - Eye pain [None]
  - Eyelid disorder [None]
  - Vision blurred [None]
  - Foreign body sensation in eyes [None]
